FAERS Safety Report 14168915 (Version 1)
Quarter: 2017Q4

REPORT INFORMATION
  Report Type: Spontaneous
  Country: US (occurrence: None)
  Receive Date: 20171107
  Receipt Date: 20171107
  Transmission Date: 20180321
  Serious: Yes (Hospitalization)
  Sender: FDA-Public Use
  Company Number: None

PATIENT
  Age: 31 Year
  Sex: Female

DRUGS (3)
  1. CIALIS [Concomitant]
     Active Substance: TADALAFIL
  2. VIAGRA [Concomitant]
     Active Substance: SILDENAFIL CITRATE
  3. MYCOPHENOLATE 500MG [Suspect]
     Active Substance: MYCOPHENOLIC ACID
     Indication: SYSTEMIC LUPUS ERYTHEMATOSUS
     Route: 048
     Dates: start: 20151022

REACTIONS (1)
  - Road traffic accident [None]

NARRATIVE: CASE EVENT DATE: 201711
